FAERS Safety Report 17018702 (Version 1)
Quarter: 2019Q4

REPORT INFORMATION
  Report Type: Spontaneous
  Country: HR (occurrence: HR)
  Receive Date: 20191111
  Receipt Date: 20191111
  Transmission Date: 20200122
  Serious: Yes (Death, Hospitalization)
  Sender: FDA-Public Use
  Company Number: HR-ROCHE-2466975

PATIENT
  Age: 71 Year
  Sex: Female
  Weight: 68 kg

DRUGS (3)
  1. BENDAMUSTINE [Suspect]
     Active Substance: BENDAMUSTINE
     Indication: B-CELL LYMPHOMA
     Route: 042
     Dates: start: 20190305, end: 20190815
  2. GAZYVARO [Suspect]
     Active Substance: OBINUTUZUMAB
     Indication: B-CELL LYMPHOMA
     Dosage: FIRST CYCLE G ADMINISTERED ON DAY 1, 8, 15
     Route: 042
     Dates: start: 20190402, end: 20190816
  3. ZIEXTENZO [Concomitant]
     Active Substance: PEGFILGRASTIM-BMEZ
     Route: 065

REACTIONS (7)
  - Infection [Unknown]
  - Diarrhoea [Unknown]
  - Febrile neutropenia [Fatal]
  - Hip fracture [Unknown]
  - Pancytopenia [Fatal]
  - Body temperature increased [Unknown]
  - Sepsis [Fatal]

NARRATIVE: CASE EVENT DATE: 20190710
